FAERS Safety Report 6331375-4 (Version None)
Quarter: 2009Q3

REPORT INFORMATION
  Report Type: 
  Country: None (occurrence: None)
  Receive Date: 20090827
  Receipt Date: 20090821
  Transmission Date: 20100115
  Serious: Yes (Hospitalization)
  Sender: FDA-Public Use
  Company Number: US-ABBOTT-08P-163-0432698-00

PATIENT
  Sex: Male
  Weight: 72 kg

DRUGS (6)
  1. HUMIRA [Suspect]
     Indication: RHEUMATOID ARTHRITIS
     Route: 058
     Dates: start: 20070801
  2. CYMBALTA [Concomitant]
     Indication: DEPRESSION
     Route: 048
  3. LITHIUM CARBONATE [Concomitant]
     Indication: DEPRESSION
     Route: 048
  4. CLONAZEPAM [Concomitant]
     Indication: DEPRESSION
     Route: 048
  5. SEROQUEL [Concomitant]
     Indication: DEPRESSION
     Route: 048
  6. KETOPROFEN [Concomitant]
     Indication: RHEUMATOID ARTHRITIS
     Route: 048

REACTIONS (2)
  - DEPRESSION [None]
  - INCORRECT DOSE ADMINISTERED [None]
